FAERS Safety Report 4442449-7 (Version None)
Quarter: 2004Q3

REPORT INFORMATION
  Report Type: 
  Country: None (occurrence: None)
  Receive Date: 20040903
  Receipt Date: 20040506
  Transmission Date: 20050211
  Serious: Yes (Other)
  Sender: FDA-Public Use
  Company Number: 2004UW09521

PATIENT

DRUGS (2)
  1. CRESTOR [Suspect]
  2. ANTIVIRAL [Concomitant]

REACTIONS (1)
  - DRUG TOXICITY [None]
